FAERS Safety Report 6198035-4 (Version None)
Quarter: 2009Q2

REPORT INFORMATION
  Report Type: 
  Country: None (occurrence: None)
  Receive Date: 20090515
  Receipt Date: 20090122
  Transmission Date: 20091009
  Serious: No
  Sender: FDA-Public Use
  Company Number: WAES 0812USA01783

PATIENT
  Age: 61 Year
  Sex: Female

DRUGS (1)
  1. ZOLINZA [Suspect]
     Indication: MYCOSIS FUNGOIDES
     Dates: start: 20070701

REACTIONS (1)
  - SKIN HYPERPIGMENTATION [None]
